FAERS Safety Report 4941188-3 (Version None)
Quarter: 2006Q1

REPORT INFORMATION
  Report Type: 
  Country: None (occurrence: None)
  Receive Date: 20060310
  Receipt Date: 20060310
  Transmission Date: 20060701
  Serious: Yes (Life-Threatening, Other)
  Sender: FDA-Public Use
  Company Number: None

PATIENT
  Age: 47 Year
  Sex: Female
  Weight: 58.9676 kg

DRUGS (2)
  1. AMBIEN [Suspect]
     Indication: INSOMNIA
     Dosage: 10 MG AS NEEDED PO
     Route: 048
     Dates: start: 20030602, end: 20040606
  2. WELLBUTRIN [Concomitant]

REACTIONS (1)
  - ABNORMAL SLEEP-RELATED EVENT [None]
